FAERS Safety Report 11599195 (Version 1)
Quarter: 2015Q4

REPORT INFORMATION
  Report Type: Spontaneous
  Country: JP (occurrence: JP)
  Receive Date: 20151006
  Receipt Date: 20151006
  Transmission Date: 20160304
  Serious: Yes (Death)
  Sender: FDA-Public Use
  Company Number: JP-009507513-1510JPN000601

PATIENT
  Age: 79 Year
  Sex: Male
  Weight: 50 kg

DRUGS (5)
  1. CANCIDAS [Suspect]
     Active Substance: CASPOFUNGIN ACETATE
     Indication: PLEURAL INFECTION
     Dosage: 50 MG, QD
     Route: 041
     Dates: start: 20140226, end: 20140226
  2. CANCIDAS [Suspect]
     Active Substance: CASPOFUNGIN ACETATE
     Indication: PLEURAL INFECTION
     Dosage: 70 MG, QD
     Route: 041
     Dates: start: 20140225, end: 20140225
  3. GRAVITOR SR [Concomitant]
     Indication: CHRONIC OBSTRUCTIVE PULMONARY DISEASE
     Dosage: 500 MG, QD
     Route: 051
     Dates: start: 20140224, end: 20140226
  4. FUROSEMIDE. [Concomitant]
     Active Substance: FUROSEMIDE
     Indication: CARDIAC FAILURE
     Dosage: 20 MG, QD
     Route: 051
     Dates: start: 20140221, end: 20140227
  5. BFLUID [Concomitant]
     Active Substance: AMINO ACIDS\DEXTROSE\ELECTROLYTES NOS\VITAMINS
     Indication: DECREASED APPETITE
     Dosage: 500 ML, QD
     Route: 051
     Dates: start: 20140222, end: 20140227

REACTIONS (1)
  - Pleural infection [Fatal]

NARRATIVE: CASE EVENT DATE: 20140227
